FAERS Safety Report 24154674 (Version 4)
Quarter: 2024Q4

REPORT INFORMATION
  Report Type: Spontaneous
  Country: ES (occurrence: ES)
  Receive Date: 20240731
  Receipt Date: 20241111
  Transmission Date: 20250115
  Serious: Yes (Death, Life-Threatening, Other)
  Sender: BIOVITRUM
  Company Number: ES-BIOVITRUM-2024-ES-010340

PATIENT

DRUGS (1)
  1. GAMIFANT [Suspect]
     Active Substance: EMAPALUMAB-LZSG
     Indication: Haemophagocytic lymphohistiocytosis

REACTIONS (5)
  - Pulmonary haemorrhage [Fatal]
  - Septic shock [Unknown]
  - Off label use [Unknown]
  - Haemodynamic instability [Fatal]
  - Multiple organ dysfunction syndrome [Fatal]
